FAERS Safety Report 8875710 (Version 1)
Quarter: 2012Q4

REPORT INFORMATION
  Report Type: 
  Country: US (occurrence: US)
  Receive Date: 20121023
  Receipt Date: 20121023
  Transmission Date: 20130627
  Serious: Yes (Other)
  Sender: FDA-Public Use
  Company Number: US-ROCHE-1134219

PATIENT
  Sex: Male

DRUGS (8)
  1. RAPTIVA [Suspect]
     Indication: PSORIASIS
     Route: 065
  2. RAPTIVA [Suspect]
     Indication: PUSTULAR PSORIASIS
  3. CLOBETASOL [Concomitant]
  4. PSORCON [Concomitant]
  5. DOVONEX [Concomitant]
  6. CARDIZEM [Concomitant]
  7. LIPITOR [Concomitant]
  8. HYZAAR (UNITED STATES) [Concomitant]

REACTIONS (5)
  - Pruritus [Unknown]
  - Skin exfoliation [Unknown]
  - Haemorrhage [Unknown]
  - Pain [Unknown]
  - Skin irritation [Unknown]
